FAERS Safety Report 5701868-9 (Version None)
Quarter: 2008Q2

REPORT INFORMATION
  Report Type: 
  Country: None (occurrence: None)
  Receive Date: 20080411
  Receipt Date: 20080403
  Transmission Date: 20081010
  Serious: Yes (Hospitalization, Other)
  Sender: FDA-Public Use
  Company Number: DE-BRISTOL-MYERS SQUIBB COMPANY-14137954

PATIENT
  Sex: Female

DRUGS (1)
  1. ORENCIA [Suspect]
     Indication: PAIN

REACTIONS (4)
  - DYSPHAGIA [None]
  - MALIGNANT MELANOMA [None]
  - PYREXIA [None]
  - THROMBOSIS [None]
